FAERS Safety Report 6554217-0 (Version None)
Quarter: 2010Q1

REPORT INFORMATION
  Report Type: 
  Country: None (occurrence: None)
  Receive Date: 20100127
  Receipt Date: 20091221
  Transmission Date: 20100710
  Serious: No
  Sender: FDA-Public Use
  Company Number: JP-MERCK-1001USA00786

PATIENT

DRUGS (1)
  1. FOSAMAX [Suspect]
     Route: 048

REACTIONS (5)
  - GLOMERULONEPHRITIS [None]
  - HAEMATURIA [None]
  - LUPUS NEPHRITIS [None]
  - NEPHRITIS [None]
  - PROTEINURIA [None]
